FAERS Safety Report 18505403 (Version 2)
Quarter: 2020Q4

REPORT INFORMATION
  Report Type: Spontaneous
  Country: US (occurrence: US)
  Receive Date: 20201116
  Receipt Date: 20201218
  Transmission Date: 20210114
  Serious: Yes (Life-Threatening, Hospitalization)
  Sender: FDA-Public Use
  Company Number: US-ULTRAGENYX PHARMACEUTICAL INC.-US-UGNX-20-00232

PATIENT
  Age: 6 Month
  Sex: Female

DRUGS (4)
  1. DOJOLVI [Suspect]
     Active Substance: TRIHEPTANOIN
     Indication: FATTY ACID OXIDATION DISORDER
     Route: 048
     Dates: start: 20201001
  2. DOJOLVI [Suspect]
     Active Substance: TRIHEPTANOIN
     Route: 048
  3. LEVOCARNITINE. [Concomitant]
     Active Substance: LEVOCARNITINE
     Indication: PRODUCT USED FOR UNKNOWN INDICATION
  4. WALNUT OIL [Concomitant]
     Active Substance: WALNUT OIL
     Indication: PRODUCT USED FOR UNKNOWN INDICATION

REACTIONS (1)
  - Cardiac failure [Not Recovered/Not Resolved]

NARRATIVE: CASE EVENT DATE: 20201102
